FAERS Safety Report 21237693 (Version 2)
Quarter: 2022Q3

REPORT INFORMATION
  Report Type: Spontaneous
  Country: US (occurrence: US)
  Receive Date: 20220822
  Receipt Date: 20220916
  Transmission Date: 20221026
  Serious: No
  Sender: FDA-Public Use
  Company Number: US-PFIZER INC-202201074417

PATIENT
  Age: 70 Year
  Sex: Male
  Weight: 80.726 kg

DRUGS (1)
  1. PAXLOVID [Suspect]
     Active Substance: NIRMATRELVIR\RITONAVIR
     Indication: COVID-19 treatment
     Dosage: UNK, 2X/DAY (NIRMATRELVIR 150 MG, RITONAVIR 100 MG BOTH TABLETS)
     Dates: start: 20220805, end: 20220809

REACTIONS (2)
  - Dysgeusia [Recovered/Resolved]
  - Taste disorder [Recovered/Resolved]

NARRATIVE: CASE EVENT DATE: 20220801
